FAERS Safety Report 4637420-6 (Version None)
Quarter: 2005Q2

REPORT INFORMATION
  Report Type: 
  Country: None (occurrence: None)
  Receive Date: 20050418
  Receipt Date: 20050307
  Transmission Date: 20051028
  Serious: Yes (Other)
  Sender: FDA-Public Use
  Company Number: PHRM2005FR01012

PATIENT
  Age: 24 Year
  Sex: Female
  Weight: 57 kg

DRUGS (3)
  1. ZOMETA [Suspect]
     Indication: MALIGNANT HISTIOCYTOSIS
     Dosage: 4 MG EVERY 6 WEEKS
     Route: 042
     Dates: start: 20041001, end: 20050201
  2. OROCAL D3 [Concomitant]
     Dates: start: 20041001, end: 20050401
  3. CORTICOSTEROID NOS [Suspect]
     Indication: MALIGNANT HISTIOCYTOSIS
     Dosage: 300 MG EVERY 3 WEEKS
     Dates: start: 20040301, end: 20050101

REACTIONS (1)
  - MOUTH ULCERATION [None]
